FAERS Safety Report 16347688 (Version 1)
Quarter: 2019Q2

REPORT INFORMATION
  Report Type: Spontaneous
  Country: FR (occurrence: FR)
  Receive Date: 20190523
  Receipt Date: 20190523
  Transmission Date: 20190711
  Serious: Yes (Hospitalization)
  Sender: FDA-Public Use
  Company Number: FR-MYLANLABS-2019M1047104

PATIENT
  Age: 85 Year
  Sex: Male
  Weight: 47.6 kg

DRUGS (1)
  1. KETOPROFEN. [Suspect]
     Active Substance: KETOPROFEN
     Indication: SCIATICA
     Dosage: 400 MILLIGRAM, QD
     Route: 048
     Dates: start: 20180910, end: 20180914

REACTIONS (6)
  - Product administration error [Recovered/Resolved]
  - Incorrect dose administered [Recovered/Resolved]
  - Hepatocellular injury [Recovering/Resolving]
  - Pancreatitis [Recovering/Resolving]
  - Pancytopenia [Recovering/Resolving]
  - Cholestasis [Recovering/Resolving]

NARRATIVE: CASE EVENT DATE: 201809
